FAERS Safety Report 9763865 (Version 1)
Quarter: 2013Q4

REPORT INFORMATION
  Report Type: Spontaneous
  Country: US (occurrence: US)
  Receive Date: 20131216
  Receipt Date: 20131216
  Transmission Date: 20140711
  Serious: No
  Sender: FDA-Public Use
  Company Number: US-BIOGENIDEC-2013BI115716

PATIENT
  Sex: Female

DRUGS (2)
  1. TECFIDERA [Suspect]
     Indication: MULTIPLE SCLEROSIS
     Dates: start: 2013
  2. AVONEX [Concomitant]
     Indication: MULTIPLE SCLEROSIS
     Route: 030
     Dates: start: 20130304, end: 20130916

REACTIONS (14)
  - Central nervous system lesion [Not Recovered/Not Resolved]
  - Liver disorder [Unknown]
  - Renal disorder [Unknown]
  - Gait disturbance [Unknown]
  - Depression [Unknown]
  - Pyrexia [Unknown]
  - Tremor [Unknown]
  - Hemiplegia [Unknown]
  - Asthenia [Not Recovered/Not Resolved]
  - Eye disorder [Not Recovered/Not Resolved]
  - White blood cell count increased [Unknown]
  - Arthropathy [Not Recovered/Not Resolved]
  - Muscle spasms [Unknown]
  - Nervousness [Not Recovered/Not Resolved]
